FAERS Safety Report 7525136-8 (Version None)
Quarter: 2011Q2

REPORT INFORMATION
  Report Type: 
  Country: None (occurrence: None)
  Receive Date: 20110606
  Receipt Date: 20110601
  Transmission Date: 20111010
  Serious: Yes (Death, Hospitalization)
  Sender: FDA-Public Use
  Company Number: BR-SANOFI-AVENTIS-2011SA029053

PATIENT
  Age: 51 Year
  Sex: Male
  Weight: 46 kg

DRUGS (78)
  1. FLUOROURACIL [Suspect]
     Indication: COLORECTAL CANCER
     Route: 042
     Dates: start: 20100831
  2. OMEPRAZOLE [Concomitant]
     Dates: start: 20101129, end: 20101201
  3. OMEPRAZOLE [Concomitant]
     Dates: start: 20110211, end: 20110222
  4. MORPHINE [Concomitant]
     Dates: start: 20101129, end: 20101201
  5. MORPHINE [Concomitant]
     Dates: start: 20101129, end: 20101201
  6. MORPHINE [Concomitant]
     Dates: start: 20101202, end: 20101228
  7. NEBACETIN [Concomitant]
     Route: 061
     Dates: start: 20110120, end: 20110201
  8. BROMOPRIDE [Concomitant]
     Indication: NAUSEA
     Dosage: 3 TABLETS
     Dates: start: 20110213, end: 20110215
  9. ESOMEPRAZOLE MAGNESIUM [Concomitant]
     Dates: start: 20110224, end: 20110415
  10. ONDANSETRON [Concomitant]
     Indication: NAUSEA
     Dates: start: 20110325, end: 20110331
  11. ONDANSETRON [Concomitant]
     Indication: VOMITING
     Dates: start: 20110325, end: 20110331
  12. OMEPRAZOLE [Concomitant]
     Dates: start: 20110120, end: 20110126
  13. OMEPRAZOLE [Concomitant]
     Dates: start: 20110126, end: 20110210
  14. OMEPRAZOLE [Concomitant]
     Dates: start: 20110126, end: 20110210
  15. METOCLOPRAMIDE [Concomitant]
     Indication: VOMITING
     Dates: start: 20101121, end: 20101121
  16. MORPHINE [Concomitant]
     Dates: start: 20101229, end: 20110325
  17. TRANEXAMIC ACID [Concomitant]
     Indication: PROPHYLAXIS
     Dosage: 3 AMPOULE PER DAY
     Dates: start: 20110213, end: 20110214
  18. TRANEXAMIC ACID [Concomitant]
     Dosage: 3 TABLETS PER DAY
     Dates: start: 20110214, end: 20110221
  19. TRANEXAMIC ACID [Concomitant]
     Dosage: 1 CAPSULE PER DAY
     Dates: start: 20110405, end: 20110411
  20. OXALIPLATIN [Suspect]
     Indication: COLORECTAL CANCER
     Route: 041
     Dates: start: 20100831, end: 20100831
  21. INVESTIGATIONAL DRUG [Suspect]
     Indication: COLORECTAL CANCER
     Route: 048
     Dates: start: 20100831, end: 20110415
  22. OMEPRAZOLE [Concomitant]
  23. OMEPRAZOLE [Concomitant]
  24. OMEPRAZOLE [Concomitant]
     Dates: start: 20101202, end: 20101228
  25. OMEPRAZOLE [Concomitant]
     Dates: start: 20101228, end: 20110120
  26. OMEPRAZOLE [Concomitant]
     Dates: start: 20110120, end: 20110126
  27. MORPHINE [Concomitant]
     Dates: start: 20101118, end: 20101128
  28. MORPHINE [Concomitant]
     Dates: start: 20101229, end: 20110325
  29. NEBACETIN [Concomitant]
     Route: 061
     Dates: start: 20110403, end: 20110424
  30. TRANEXAMIC ACID [Concomitant]
     Dosage: 3 TABLETS PER DAY
     Dates: start: 20110223, end: 20110324
  31. TRANEXAMIC ACID [Concomitant]
     Dosage: 3 TABLETS PER DAY
     Dates: start: 20110223, end: 20110324
  32. TRANEXAMIC ACID [Concomitant]
     Dosage: 1 CAPSULE PER DAY
     Dates: start: 20110405, end: 20110411
  33. OMEPRAZOLE [Concomitant]
     Indication: GASTRITIS
  34. OMEPRAZOLE [Concomitant]
     Dates: start: 20110126, end: 20110210
  35. METOCLOPRAMIDE [Concomitant]
     Indication: NAUSEA
     Dates: start: 20101121, end: 20101121
  36. MORPHINE [Concomitant]
     Dates: start: 20110326, end: 20110415
  37. BROMOPRIDE [Concomitant]
     Dosage: 3 TABLETS
     Dates: start: 20110213, end: 20110215
  38. BROMOPRIDE [Concomitant]
     Dates: start: 20110225, end: 20110301
  39. TRANEXAMIC ACID [Concomitant]
     Dosage: 3 TABLETS PER DAY
     Dates: start: 20110214, end: 20110221
  40. ONDANSETRON [Concomitant]
     Dates: start: 20110401, end: 20110424
  41. OMEPRAZOLE [Concomitant]
     Indication: PROPHYLAXIS
  42. OMEPRAZOLE [Concomitant]
  43. METOCLOPRAMIDE [Concomitant]
     Dates: start: 20110325, end: 20110415
  44. MORPHINE [Concomitant]
     Dates: start: 20101202, end: 20101228
  45. NEBACETIN [Concomitant]
     Indication: INFECTION
     Route: 061
     Dates: start: 20110112, end: 20110119
  46. BROMOPRIDE [Concomitant]
     Dates: start: 20110302, end: 20110404
  47. TRANEXAMIC ACID [Concomitant]
     Dosage: 3 AMPOULE PER DAY
     Dates: start: 20110213, end: 20110214
  48. TRANEXAMIC ACID [Concomitant]
     Dosage: 3 TABLETS PER DAY
     Dates: start: 20110214, end: 20110221
  49. TRANEXAMIC ACID [Concomitant]
     Dosage: 1 CAPSULE PER DAY
     Dates: start: 20110405, end: 20110411
  50. OMEPRAZOLE [Concomitant]
  51. OMEPRAZOLE [Concomitant]
     Dates: start: 20101202, end: 20101228
  52. OMEPRAZOLE [Concomitant]
     Dates: start: 20101202, end: 20101228
  53. OMEPRAZOLE [Concomitant]
     Dates: start: 20110211, end: 20110222
  54. MORPHINE [Concomitant]
     Dates: start: 20110326, end: 20110415
  55. CLONAZEPAM [Concomitant]
     Indication: ANXIETY
     Dates: start: 20101215, end: 20110125
  56. TRANEXAMIC ACID [Concomitant]
     Dosage: 3 TABLETS PER DAY
     Dates: start: 20110223, end: 20110324
  57. OMEPRAZOLE [Concomitant]
     Dates: start: 20101129, end: 20101201
  58. OMEPRAZOLE [Concomitant]
     Dates: start: 20101228, end: 20110120
  59. OMEPRAZOLE [Concomitant]
     Dates: start: 20110120, end: 20110126
  60. METOCLOPRAMIDE [Concomitant]
     Dates: start: 20110325, end: 20110415
  61. CLONAZEPAM [Concomitant]
     Dates: start: 20110126, end: 20110325
  62. CLONAZEPAM [Concomitant]
     Dates: start: 20110326, end: 20110424
  63. BROMOPRIDE [Concomitant]
     Dosage: 3 TABLETS
     Dates: start: 20110216, end: 20110224
  64. BROMOPRIDE [Concomitant]
     Dosage: 3 TABLETS
     Dates: start: 20110216, end: 20110224
  65. BROMOPRIDE [Concomitant]
     Dates: start: 20110302, end: 20110404
  66. TRANEXAMIC ACID [Concomitant]
     Dosage: 1 TABLET PER DAY
     Dates: start: 20110325, end: 20110404
  67. TRANEXAMIC ACID [Concomitant]
     Dosage: 1 TABLET PER DAY
     Dates: start: 20110325, end: 20110404
  68. ONDANSETRON [Concomitant]
     Dates: start: 20110401, end: 20110424
  69. OXALIPLATIN [Suspect]
     Route: 041
     Dates: start: 20110407, end: 20110407
  70. LEUCOVORIN CALCIUM [Suspect]
     Indication: COLORECTAL CANCER
     Route: 065
  71. OMEPRAZOLE [Concomitant]
     Dates: start: 20101129, end: 20101201
  72. OMEPRAZOLE [Concomitant]
     Dates: start: 20101228, end: 20110120
  73. OMEPRAZOLE [Concomitant]
     Dates: start: 20110211, end: 20110222
  74. MORPHINE [Concomitant]
     Indication: PAIN PROPHYLAXIS
     Dates: start: 20101118, end: 20101128
  75. BROMOPRIDE [Concomitant]
     Dates: start: 20110225, end: 20110301
  76. TRANEXAMIC ACID [Concomitant]
     Dosage: 3 AMPOULE PER DAY
     Dates: start: 20110213, end: 20110214
  77. TRANEXAMIC ACID [Concomitant]
     Dosage: 1 TABLET PER DAY
     Dates: start: 20110325, end: 20110404
  78. NEODECADRON [Concomitant]
     Indication: INFECTION PROPHYLAXIS
     Route: 061
     Dates: start: 20110326, end: 20110402

REACTIONS (4)
  - FATIGUE [None]
  - THROMBOCYTOPENIA [None]
  - POST PROCEDURAL HAEMORRHAGE [None]
  - RENAL FAILURE ACUTE [None]
